FAERS Safety Report 9842073 (Version 1)
Quarter: 2014Q1

REPORT INFORMATION
  Report Type: Spontaneous
  Country: FR (occurrence: FR)
  Receive Date: 20140124
  Receipt Date: 20140124
  Transmission Date: 20141002
  Serious: Yes (Hospitalization)
  Sender: FDA-Public Use
  Company Number: FR-BRISTOL-MYERS SQUIBB COMPANY-20032371

PATIENT
  Age: 57 Year
  Sex: Female

DRUGS (11)
  1. BARACLUDE [Suspect]
     Indication: ACUTE HEPATITIS B
     Route: 048
     Dates: start: 20120201, end: 20120620
  2. ENDOXAN [Suspect]
     Indication: SJOGREN^S SYNDROME
     Dosage: 8 COURSES
     Route: 048
     Dates: start: 20120123, end: 20120523
  3. GLUCOPHAGE [Concomitant]
  4. NOVORAPID [Concomitant]
  5. BACTRIM [Concomitant]
  6. CACIT D3 [Concomitant]
  7. DIFFU-K [Concomitant]
  8. ZELITREX [Concomitant]
  9. ATARAX [Concomitant]
  10. CORTANCYL [Concomitant]
  11. UMULINE PROFIL [Concomitant]

REACTIONS (2)
  - Arthralgia [Recovered/Resolved]
  - Blood creatine phosphokinase increased [Unknown]
